FAERS Safety Report 5927513-5 (Version None)
Quarter: 2008Q4

REPORT INFORMATION
  Report Type: 
  Country: None (occurrence: None)
  Receive Date: 20081021
  Receipt Date: 20081021
  Transmission Date: 20090506
  Serious: Yes (Hospitalization)
  Sender: FDA-Public Use
  Company Number: None

PATIENT
  Sex: Male
  Weight: 83.9154 kg

DRUGS (10)
  1. ERBITUX [Suspect]
     Indication: OROPHARYNGEAL CANCER STAGE UNSPECIFIED
     Dosage: 810MG ONCE IV DRIP
     Route: 041
     Dates: start: 20081006, end: 20081006
  2. LOPERAMIDE HCL [Concomitant]
  3. DILTIAZEM [Concomitant]
  4. ESOMEPRAZOLE MAGNESIUM [Concomitant]
  5. LEVOTHYROXINE SODIUM [Concomitant]
  6. GUAIFENASIN [Concomitant]
  7. DEXTROMETHORPHAN HYDROBROMIDE [Concomitant]
  8. IPRATROPIUM BROMIDE [Concomitant]
  9. ALBUTEROL SULFATE AEROSOL [Concomitant]
  10. TELMISARTAN/HYDROCHLOROTHIAZIDE [Concomitant]

REACTIONS (3)
  - ANAPHYLACTIC REACTION [None]
  - INFUSION RELATED REACTION [None]
  - PYREXIA [None]
